FAERS Safety Report 5264424-5 (Version None)
Quarter: 2007Q1

REPORT INFORMATION
  Report Type: 
  Country: None (occurrence: None)
  Receive Date: 20070309
  Receipt Date: 20070226
  Transmission Date: 20070707
  Serious: Yes (Hospitalization)
  Sender: FDA-Public Use
  Company Number: 235886

PATIENT
  Age: 71 Year
  Sex: Female
  Weight: 56 kg

DRUGS (6)
  1. AVASTIN [Suspect]
     Indication: ANGIOSARCOMA
     Dosage: 15 MG, Q3W, INTRAVENOUS
     Route: 042
     Dates: start: 20070112
  2. MULTIVITAMIN (MULTIVITAMINS NOS) [Concomitant]
  3. ANTIOXIDANT (ANTIOXIDANTS NOS) [Concomitant]
  4. TYLENOL (CAPLET) [Concomitant]
  5. CALCIUM (CALCIUM NOS) [Concomitant]
  6. ASPIRIN [Concomitant]

REACTIONS (4)
  - AORTIC VALVE INCOMPETENCE [None]
  - CHEST PAIN [None]
  - MITRAL VALVE INCOMPETENCE [None]
  - PERICARDIAL EFFUSION [None]
